FAERS Safety Report 20101344 (Version 2)
Quarter: 2022Q1

REPORT INFORMATION
  Report Type: Spontaneous
  Country: US (occurrence: US)
  Receive Date: 20211123
  Receipt Date: 20220110
  Transmission Date: 20220423
  Serious: No
  Sender: FDA-Public Use
  Company Number: US-GLENMARK PHARMACEUTICALS-2021GMK068198

PATIENT

DRUGS (1)
  1. CICLOPIROX [Suspect]
     Active Substance: CICLOPIROX
     Indication: Product used for unknown indication
     Dosage: UNK
     Route: 061

REACTIONS (8)
  - Rash erythematous [Unknown]
  - Rash pruritic [Unknown]
  - Product substitution issue [Unknown]
  - Product leakage [Unknown]
  - Product physical consistency issue [Unknown]
  - Product packaging quantity issue [Unknown]
  - Drug ineffective [Unknown]
  - Product quality issue [Unknown]
